FAERS Safety Report 4960316-7 (Version None)
Quarter: 2006Q1

REPORT INFORMATION
  Report Type: 
  Country: None (occurrence: None)
  Receive Date: 20060328
  Receipt Date: 20060316
  Transmission Date: 20060701
  Serious: Yes (Death)
  Sender: FDA-Public Use
  Company Number: 2006-02-1060

PATIENT
  Age: 74 Year
  Sex: Male

DRUGS (9)
  1. PEG-INTRON [Suspect]
     Indication: HEPATITIS C
     Dosage: 120 UG QW SUBCUTANEOUS
     Route: 058
     Dates: start: 20040331, end: 20050323
  2. REBETOL [Suspect]
     Indication: HEPATITIS C
     Dosage: 1000 MG QD ORAL
     Route: 048
     Dates: start: 20040331, end: 20050329
  3. LOPERAMIDE [Concomitant]
  4. PANTOPRAZOLE SODIUM [Concomitant]
  5. PROPOXYPHENE [Concomitant]
  6. ZYRTEC [Concomitant]
  7. ATARAX [Concomitant]
  8. TRINIPATCH (GLYCERYL TRINITRATE) [Concomitant]
  9. BETNELAN [Concomitant]

REACTIONS (1)
  - DEATH [None]
